FAERS Safety Report 12116070 (Version 1)
Quarter: 2016Q1

REPORT INFORMATION
  Report Type: Spontaneous
  Country: US (occurrence: US)
  Receive Date: 20160225
  Receipt Date: 20160225
  Transmission Date: 20160526
  Serious: No
  Sender: FDA-Public Use
  Company Number: US-LANTHEUS-LMI-2015-00278

PATIENT

DRUGS (3)
  1. DEFINITY [Suspect]
     Active Substance: PERFLUTREN
     Indication: STRESS ECHOCARDIOGRAM
     Dosage: DILUENT AND ROUTE OF ADMINISTRATION NOT PROVIDED
     Dates: start: 20150519, end: 20150519
  2. DEFINITY [Suspect]
     Active Substance: PERFLUTREN
     Dosage: DILUENT AND ROUTE OF ADMINISTRATION NOT PROVIDED
     Dates: start: 20150519, end: 20150519
  3. DEFINITY [Suspect]
     Active Substance: PERFLUTREN
     Dosage: DILUENT AND ROUTE OF ADMINISTRATION NOT PROVIDED
     Dates: start: 20150519, end: 20150519

REACTIONS (2)
  - Back pain [Recovered/Resolved]
  - Pain in extremity [Recovered/Resolved]

NARRATIVE: CASE EVENT DATE: 20150519
